FAERS Safety Report 9756170 (Version 1)
Quarter: 2013Q4

REPORT INFORMATION
  Report Type: Spontaneous
  Country: US (occurrence: US)
  Receive Date: 20131213
  Receipt Date: 20131213
  Transmission Date: 20140711
  Serious: No
  Sender: FDA-Public Use
  Company Number: US-GLAXOSMITHKLINE-A1034159A

PATIENT
  Sex: Female

DRUGS (3)
  1. NICODERM CQ CLEAR 21MG [Suspect]
     Indication: EX-TOBACCO USER
     Route: 062
     Dates: start: 201305
  2. NICODERM CQ [Suspect]
     Indication: EX-TOBACCO USER
     Route: 062
  3. ADHESIVE TAPE [Suspect]
     Indication: ADHESION
     Route: 061

REACTIONS (4)
  - Application site pruritus [Unknown]
  - Application site rash [Recovered/Resolved]
  - Product quality issue [Unknown]
  - Drug ineffective [Unknown]
